FAERS Safety Report 9004850 (Version 1)
Quarter: 2013Q1

REPORT INFORMATION
  Report Type: Spontaneous
  Country: US (occurrence: None)
  Receive Date: 20130107
  Receipt Date: 20130107
  Transmission Date: 20140127
  Serious: No
  Sender: FDA-Public Use
  Company Number: None

PATIENT
  Age: 74 Year
  Sex: Male
  Weight: 102.51 kg

DRUGS (2)
  1. NEUPRO [Suspect]
     Indication: RESTLESS LEGS SYNDROME
     Dates: start: 20121203, end: 20121231
  2. NEUPRO [Suspect]
     Dosage: 4 MG

REACTIONS (3)
  - Drug hypersensitivity [None]
  - Application site swelling [None]
  - Application site vesicles [None]
